FAERS Safety Report 7556924-X (Version None)
Quarter: 2011Q2

REPORT INFORMATION
  Report Type: 
  Country: None (occurrence: None)
  Receive Date: 20110620
  Receipt Date: 20110606
  Transmission Date: 20111010
  Serious: Yes (Hospitalization)
  Sender: FDA-Public Use
  Company Number: PHHY2010US33053

PATIENT
  Sex: Female
  Weight: 85 kg

DRUGS (24)
  1. LASIX [Concomitant]
     Dosage: 20 MG, UNK
     Route: 048
  2. MIRALAX [Concomitant]
     Dosage: 17 G, UNK AS NEEDED
     Route: 048
  3. CYMBALTA [Concomitant]
     Dosage: 40 MG DAILY
     Route: 048
  4. SUMATRIPTAN SUCCINATE [Concomitant]
     Indication: HEADACHE
     Dosage: 25 MG, UNK
     Route: 048
  5. EXJADE [Suspect]
     Indication: SICKLE CELL ANAEMIA
     Dosage: 1000 MG, BID
     Route: 048
     Dates: end: 20100410
  6. COLACE [Concomitant]
     Dosage: 100 MG, BID
     Route: 048
  7. NYSTATIN [Concomitant]
     Dosage: PRN
  8. IBUPROFEN [Concomitant]
     Indication: PAIN
     Dosage: 600 MG,
     Route: 048
  9. IMODIUM [Concomitant]
     Dosage: 2 MG, PRN
     Route: 048
  10. SENNA-MINT WAF [Concomitant]
     Dosage: PRN
  11. SIMETHICONE [Concomitant]
     Dosage: 80 MG, UNK  FOUR TIME DAILY
     Route: 048
  12. EXJADE [Suspect]
     Dosage: 1000 MG, QD
     Route: 048
  13. HYDREA [Concomitant]
     Dosage: 1500 MG DAILY
     Route: 048
  14. MS CONTIN [Concomitant]
     Dosage: 30 MG, TID
     Route: 048
  15. DRISDOL [Concomitant]
     Dosage: 8000 U/ML, UNK
     Route: 048
  16. NEURONTIN [Concomitant]
     Dosage: 300 MG, BID
     Route: 048
  17. PREVACID [Concomitant]
     Dosage: 30 MG DAILY
     Route: 048
  18. PERCOCET [Concomitant]
     Dosage: PRN
  19. POTASSIUM CHLORIDE [Concomitant]
     Dosage: 20 MEQ DAILY
     Route: 048
  20. EXJADE [Suspect]
     Dosage: 1500 MG, DAILY
     Route: 048
  21. BENADRYL [Concomitant]
     Dosage: 25  MG EVERY 4 DAYS
  22. FOLIC ACID [Concomitant]
     Dosage: 1 MG, DAILY
     Route: 048
  23. SENNOSIDES [Concomitant]
     Indication: CONSTIPATION
     Dosage: 8.6 MG, BID
     Route: 048
  24. MORPHINE [Concomitant]
     Dosage: 60 MG, Q12H
     Route: 048

REACTIONS (16)
  - PAIN [None]
  - SICKLE CELL ANAEMIA WITH CRISIS [None]
  - HYPOKALAEMIA [None]
  - OROPHARYNGEAL PAIN [None]
  - PAIN IN EXTREMITY [None]
  - DYSURIA [None]
  - RETCHING [None]
  - VOMITING [None]
  - OEDEMA PERIPHERAL [None]
  - COUGH [None]
  - GASTROINTESTINAL DISORDER [None]
  - DIARRHOEA [None]
  - ABDOMINAL PAIN [None]
  - DYSGEUSIA [None]
  - THROAT IRRITATION [None]
  - NAUSEA [None]
